FAERS Safety Report 10559089 (Version 1)
Quarter: 2014Q4

REPORT INFORMATION
  Report Type: Spontaneous
  Country: US (occurrence: US)
  Receive Date: 20141103
  Receipt Date: 20141103
  Transmission Date: 20150529
  Serious: Yes (Other)
  Sender: FDA-Public Use
  Company Number: US-JNJFOC-20141019244

PATIENT
  Age: 24 Year
  Sex: Male
  Weight: 115.67 kg

DRUGS (1)
  1. LISTERINE ANTISEPTIC MOUTHWASH [Suspect]
     Active Substance: EUCALYPTOL\MENTHOL\METHYL SALICYLATE\THYMOL
     Indication: DENTAL DISORDER PROPHYLAXIS
     Dosage: QUARTER OF A CAPFUL, ONCE
     Route: 048
     Dates: start: 20141019, end: 20141019

REACTIONS (5)
  - Drug hypersensitivity [Recovering/Resolving]
  - Feeling abnormal [Recovering/Resolving]
  - Hypersensitivity [None]
  - Pharyngitis streptococcal [Recovering/Resolving]
  - Pain [Recovering/Resolving]

NARRATIVE: CASE EVENT DATE: 20141021
